FAERS Safety Report 13802954 (Version 1)
Quarter: 2017Q3

REPORT INFORMATION
  Report Type: Spontaneous
  Country: US (occurrence: US)
  Receive Date: 20170728
  Receipt Date: 20170728
  Transmission Date: 20171127
  Serious: No
  Sender: FDA-Public Use
  Company Number: US-PERRIGO-17US002072

PATIENT
  Age: 72 Year
  Sex: Female
  Weight: 47.62 kg

DRUGS (4)
  1. FLONASE [Concomitant]
     Active Substance: FLUTICASONE PROPIONATE
     Indication: HYPERSENSITIVITY
     Dosage: UNK
     Route: 065
  2. MINOXIDIL. [Suspect]
     Active Substance: MINOXIDIL
     Indication: ALOPECIA
     Dosage: 1/2 CAPFUL, BID
     Route: 061
     Dates: start: 20170129
  3. OTHER OPHTHALMOLOGICALS [Concomitant]
     Indication: HYPERSENSITIVITY
     Dosage: UNK
     Route: 065
  4. LORATADINE. [Concomitant]
     Active Substance: LORATADINE
     Indication: HYPERSENSITIVITY
     Dosage: UNK
     Route: 065

REACTIONS (3)
  - Off label use [Not Recovered/Not Resolved]
  - Condition aggravated [Not Recovered/Not Resolved]
  - Overdose [Not Recovered/Not Resolved]

NARRATIVE: CASE EVENT DATE: 20170129
